FAERS Safety Report 25346652 (Version 2)
Quarter: 2025Q3

REPORT INFORMATION
  Report Type: Spontaneous
  Country: CN (occurrence: CN)
  Receive Date: 20250522
  Receipt Date: 20250717
  Transmission Date: 20251020
  Serious: No
  Sender: PFIZER
  Company Number: CN-PFIZER INC-PV202500056481

PATIENT
  Sex: Male

DRUGS (2)
  1. XYNTHA [Suspect]
     Active Substance: MOROCTOCOG ALFA
     Route: 042
     Dates: start: 20240913
  2. XYNTHA [Suspect]
     Active Substance: MOROCTOCOG ALFA

REACTIONS (1)
  - Product contamination [Unknown]
